FAERS Safety Report 5961518-3 (Version None)
Quarter: 2008Q4

REPORT INFORMATION
  Report Type: 
  Country: None (occurrence: None)
  Receive Date: 20081121
  Receipt Date: 20081110
  Transmission Date: 20090506
  Serious: Yes (Hospitalization)
  Sender: FDA-Public Use
  Company Number: US-WATSON-2008-04640

PATIENT
  Sex: Female
  Weight: 63.5 kg

DRUGS (11)
  1. FENTANYL-25 [Suspect]
     Indication: PAIN
     Dosage: 25 MCG, Q3DAYS
     Route: 062
     Dates: start: 20080503, end: 20080510
  2. FENTANYL-25 [Suspect]
     Dosage: 1 PATCH, Q 3 DAYS
     Route: 062
     Dates: start: 20070810, end: 20080503
  3. LORTAB [Concomitant]
     Indication: BREAKTHROUGH PAIN
     Dosage: 7.5 MG, TID, PRN
     Route: 048
  4. HYDRODIURIL [Concomitant]
     Indication: BLOOD PRESSURE
     Dosage: 50 MG, QAM
     Route: 048
  5. POTASSIUM CHLORIDE [Concomitant]
     Indication: ELECTROLYTE SUBSTITUTION THERAPY
     Dosage: 10 MEQ, TID
     Route: 048
  6. PREMARIN [Concomitant]
     Indication: HORMONE REPLACEMENT THERAPY
     Dosage: 0.9 MG, QAM
     Route: 048
  7. LYRICA [Concomitant]
     Indication: FIBROMYALGIA
     Dosage: 50 MG, TID
     Route: 048
  8. XANAX [Concomitant]
     Indication: ANXIETY
     Dosage: 0.5 MG, TID PRN
     Route: 048
  9. CALCIUM CARBONATE W/VITAMIN D      /00944201/ [Concomitant]
     Indication: DRUG USE FOR UNKNOWN INDICATION
  10. ACTONEL [Concomitant]
     Indication: DRUG USE FOR UNKNOWN INDICATION
     Dosage: 35 MG, 1/WEEK
  11. PROMETRIUM [Concomitant]
     Indication: DRUG USE FOR UNKNOWN INDICATION

REACTIONS (18)
  - ALTERED STATE OF CONSCIOUSNESS [None]
  - CHEST PAIN [None]
  - CHILLS [None]
  - CONFUSIONAL STATE [None]
  - CYSTITIS [None]
  - DIZZINESS [None]
  - DRUG WITHDRAWAL SYNDROME [None]
  - DYSPNOEA [None]
  - FATIGUE [None]
  - FEAR OF DISEASE [None]
  - GAIT DISTURBANCE [None]
  - HEADACHE [None]
  - HYPERHIDROSIS [None]
  - HYPOKALAEMIA [None]
  - OVERDOSE [None]
  - PALPITATIONS [None]
  - PILOERECTION [None]
  - TINNITUS [None]
